FAERS Safety Report 6210843-X (Version None)
Quarter: 2009Q2

REPORT INFORMATION
  Report Type: 
  Country: None (occurrence: None)
  Receive Date: 20090601
  Receipt Date: 20090526
  Transmission Date: 20091009
  Serious: Yes (Other)
  Sender: FDA-Public Use
  Company Number: PHHY2009MX20545

PATIENT
  Sex: Male

DRUGS (1)
  1. TEGRETOL [Suspect]
     Indication: EPILEPSY
     Dosage: 3 TABLETS DAILY
     Route: 048
     Dates: start: 19970601, end: 20090201

REACTIONS (2)
  - DYSPNOEA [None]
  - FUNGAL INFECTION [None]
